FAERS Safety Report 7402185-1 (Version None)
Quarter: 2011Q2

REPORT INFORMATION
  Report Type: 
  Country: None (occurrence: None)
  Receive Date: 20110401
  Receipt Date: 20110322
  Transmission Date: 20111010
  Serious: Yes (Hospitalization, Other)
  Sender: FDA-Public Use
  Company Number: JP-2011-10331

PATIENT
  Age: 75 Year
  Sex: Male
  Weight: 53 kg

DRUGS (11)
  1. LASIX [Concomitant]
  2. ASPIRIN [Concomitant]
  3. WARFARIN (WARFARIN POTASSIUM) [Concomitant]
  4. NOVOLOG [Concomitant]
  5. MICARDIS [Concomitant]
  6. CORETEC (OLPRINONE HYDROCHLORIDE) [Concomitant]
  7. HANP (CARPERITIDE) [Concomitant]
  8. HUMULIN R [Concomitant]
  9. RABEPRAZOLE SODIUM [Concomitant]
  10. SAMSCA [Suspect]
     Indication: CARDIAC FAILURE CONGESTIVE
     Dosage: 15 MG MILLIGRAM(S), QD, ORAL
     Route: 048
     Dates: start: 20110207, end: 20110214
  11. LEVEMIR (INSULIN DETEMIR(GENETICAL RECOMBINATION)) [Concomitant]

REACTIONS (6)
  - BLOOD GLUCOSE INCREASED [None]
  - ALTERED STATE OF CONSCIOUSNESS [None]
  - HYPERNATRAEMIA [None]
  - BLOOD UREA INCREASED [None]
  - CARDIAC FAILURE CONGESTIVE [None]
  - BLOOD SODIUM INCREASED [None]
